FAERS Safety Report 4466656-2 (Version None)
Quarter: 2004Q4

REPORT INFORMATION
  Report Type: 
  Country: None (occurrence: None)
  Receive Date: 20041001
  Receipt Date: 20041001
  Transmission Date: 20050328
  Serious: Yes (Disabling)
  Sender: FDA-Public Use
  Company Number: None

PATIENT
  Sex: Male
  Weight: 90.7194 kg

DRUGS (5)
  1. VIOXX [Suspect]
     Indication: BACK PAIN
     Dosage: 50 MG BID  ORAL
     Route: 048
     Dates: start: 19990801, end: 20040613
  2. VIOXX [Suspect]
     Indication: INTERVERTEBRAL DISC DISORDER
     Dosage: 50 MG BID  ORAL
     Route: 048
     Dates: start: 19990801, end: 20040613
  3. VIOXX [Suspect]
     Indication: PAIN IN EXTREMITY
     Dosage: 50 MG BID  ORAL
     Route: 048
     Dates: start: 19990801, end: 20040613
  4. CELEBREX [Suspect]
     Indication: INFLAMMATION
     Dosage: 200MG TID   ORAL
     Route: 048
     Dates: start: 20000901, end: 20040613
  5. CELEBREX [Suspect]
     Indication: NEURALGIA
     Dosage: 200MG TID   ORAL
     Route: 048
     Dates: start: 20000901, end: 20040613

REACTIONS (10)
  - ABDOMINAL PAIN UPPER [None]
  - CHEST PAIN [None]
  - CONDITION AGGRAVATED [None]
  - DEPRESSION [None]
  - DRUG INEFFECTIVE [None]
  - DYSPNOEA [None]
  - EATING DISORDER [None]
  - GASTRIC DISORDER [None]
  - PAIN [None]
  - PEPTIC ULCER HAEMORRHAGE [None]
